FAERS Safety Report 22862403 (Version 11)
Quarter: 2024Q3

REPORT INFORMATION
  Report Type: Spontaneous
  Country: US (occurrence: US)
  Receive Date: 20230824
  Receipt Date: 20240813
  Transmission Date: 20241017
  Serious: No
  Sender: VERTEX
  Company Number: US-VERTEX PHARMACEUTICALS-2023-012500

PATIENT
  Sex: Female

DRUGS (9)
  1. TRIKAFTA [Suspect]
     Active Substance: ELEXACAFTOR\IVACAFTOR\TEZACAFTOR
     Indication: Cystic fibrosis
     Dosage: UNKNOWN DOSAGE REGIMEN
     Route: 048
     Dates: start: 202001
  2. TRIKAFTA [Suspect]
     Active Substance: ELEXACAFTOR\IVACAFTOR\TEZACAFTOR
     Dosage: LOW DOSE
     Route: 048
  3. TRIKAFTA [Suspect]
     Active Substance: ELEXACAFTOR\IVACAFTOR\TEZACAFTOR
     Dosage: FULL DOSE
     Route: 048
  4. TRIKAFTA [Suspect]
     Active Substance: ELEXACAFTOR\IVACAFTOR\TEZACAFTOR
     Dosage: REDUCED DOSE; ONE YELLOW TAB IN AM AND ONE BLUE TAB IN PM
     Route: 048
  5. TRIKAFTA [Suspect]
     Active Substance: ELEXACAFTOR\IVACAFTOR\TEZACAFTOR
     Dosage: FULL DOSE
     Route: 048
  6. ITRACONAZOLE [Concomitant]
     Active Substance: ITRACONAZOLE
  7. CAYSTON [Concomitant]
     Active Substance: AZTREONAM
  8. LEVOFLOXACIN [Concomitant]
     Active Substance: LEVOFLOXACIN
  9. CIPROFLOXACIN [Concomitant]
     Active Substance: CIPROFLOXACIN
     Indication: Lower respiratory tract infection

REACTIONS (26)
  - Anxiety [Not Recovered/Not Resolved]
  - Aphasia [Not Recovered/Not Resolved]
  - Mental fatigue [Not Recovered/Not Resolved]
  - Panic disorder [Unknown]
  - Catastrophic reaction [Unknown]
  - Hormone level abnormal [Unknown]
  - Illness anxiety disorder [Unknown]
  - Lower respiratory tract infection [Not Recovered/Not Resolved]
  - Fatigue [Not Recovered/Not Resolved]
  - Pseudomonas infection [Unknown]
  - Fungal infection [Unknown]
  - Aspergillus infection [Unknown]
  - Malaise [Unknown]
  - Alopecia [Not Recovered/Not Resolved]
  - Pulmonary haemorrhage [Unknown]
  - Pulmonary function test decreased [Unknown]
  - Iron deficiency anaemia [Not Recovered/Not Resolved]
  - Chills [Unknown]
  - Malaise [Not Recovered/Not Resolved]
  - Pulmonary mass [Unknown]
  - Dyspnoea [Recovered/Resolved]
  - Cellulite [Unknown]
  - Fluid retention [Not Recovered/Not Resolved]
  - Depressed mood [Not Recovered/Not Resolved]
  - Premenstrual pain [Recovered/Resolved]
  - C-reactive protein increased [Not Recovered/Not Resolved]
